FAERS Safety Report 14295161 (Version 4)
Quarter: 2018Q2

REPORT INFORMATION
  Report Type: Spontaneous
  Country: DE (occurrence: DE)
  Receive Date: 20171218
  Receipt Date: 20180430
  Transmission Date: 20180711
  Serious: Yes (Hospitalization, Other)
  Sender: FDA-Public Use
  Company Number: DE-BRISTOL-MYERS SQUIBB COMPANY-BMS-2017-112899

PATIENT
  Age: 55 Year
  Sex: Female

DRUGS (4)
  1. NIVOLUMAB [Suspect]
     Active Substance: NIVOLUMAB
     Indication: MALIGNANT MELANOMA
     Dosage: UNAV.
     Route: 065
     Dates: start: 201707
  2. IPILIMUMAB [Suspect]
     Active Substance: IPILIMUMAB
     Indication: MALIGNANT MELANOMA
     Dosage: UNK
     Route: 065
  3. METHOTREXATE (METHOTREXATE SODIUM) [Concomitant]
     Active Substance: METHOTREXATE SODIUM
     Indication: PRODUCT USED FOR UNKNOWN INDICATION
     Route: 065
  4. SULFASALAZINE. [Concomitant]
     Active Substance: SULFASALAZINE
     Indication: PRODUCT USED FOR UNKNOWN INDICATION
     Route: 065

REACTIONS (11)
  - Gastritis [Unknown]
  - Enteritis [Unknown]
  - Metastases to liver [Unknown]
  - Skin mass [Unknown]
  - Metastases to central nervous system [Unknown]
  - Colitis [Unknown]
  - Rheumatoid arthritis [Unknown]
  - Oesophagitis [Unknown]
  - Duodenitis [Unknown]
  - Malignant neoplasm progression [Unknown]
  - Candida infection [Unknown]

NARRATIVE: CASE EVENT DATE: 201707
